FAERS Safety Report 14840172 (Version 1)
Quarter: 2018Q2

REPORT INFORMATION
  Report Type: Spontaneous
  Country: GB (occurrence: GB)
  Receive Date: 20180503
  Receipt Date: 20180503
  Transmission Date: 20180711
  Serious: Yes (Hospitalization)
  Sender: FDA-Public Use
  Company Number: GB-TEVA-2018-GB-887434

PATIENT
  Age: 57 Year
  Sex: Female

DRUGS (3)
  1. DEXAMETHASONE. [Concomitant]
     Active Substance: DEXAMETHASONE
     Route: 065
  2. METRONIDAZOLE. [Suspect]
     Active Substance: METRONIDAZOLE
     Indication: GIARDIASIS
     Dosage: 400MG T.I.D
     Route: 048
  3. CYCLOPENTOLATE. [Concomitant]
     Active Substance: CYCLOPENTOLATE
     Dosage: THREE TIMES A DAY
     Route: 065

REACTIONS (2)
  - Condition aggravated [Recovering/Resolving]
  - Iridocyclitis [Recovering/Resolving]
